FAERS Safety Report 10331398 (Version 1)
Quarter: 2014Q3

REPORT INFORMATION
  Report Type: Spontaneous
  Country: US (occurrence: None)
  Receive Date: 20140718
  Receipt Date: 20140718
  Transmission Date: 20150326
  Serious: Yes (Hospitalization)
  Sender: FDA-Public Use
  Company Number: CIO14047361

PATIENT
  Age: 13 Year
  Sex: Female
  Weight: 59 kg

DRUGS (6)
  1. DIPHENHYDRAMINE HCL [Suspect]
     Active Substance: DIPHENHYDRAMINE HYDROCHLORIDE
     Indication: SUICIDE ATTEMPT
     Route: 048
  2. NAPROXEN (NAPROXEN) [Suspect]
     Active Substance: NAPROXEN
     Indication: SUICIDE ATTEMPT
     Route: 048
  3. ACETAMINOPHEN (PARACETAMOL) [Suspect]
     Active Substance: ACETAMINOPHEN
     Indication: SUICIDE ATTEMPT
     Route: 048
  4. BUPROPION (BUPROPION) [Suspect]
     Active Substance: BUPROPION
     Indication: SUICIDE ATTEMPT
     Route: 048
  5. CITALOPRAM [Suspect]
     Active Substance: CITALOPRAM HYDROBROMIDE
     Indication: SUICIDE ATTEMPT
     Route: 048
  6. OMEPRAZOLE (OMEPRAZOLE) [Suspect]
     Active Substance: OMEPRAZOLE
     Indication: SUICIDE ATTEMPT
     Route: 048

REACTIONS (38)
  - Intentional overdose [None]
  - Myoclonus [None]
  - Blood chloride increased [None]
  - Gastrointestinal sounds abnormal [None]
  - Drug screen positive [None]
  - Disorientation [None]
  - Anxiety [None]
  - Blood bicarbonate increased [None]
  - Blood glucose increased [None]
  - Suicide attempt [None]
  - Abnormal behaviour [None]
  - Tachycardia [None]
  - Blood magnesium decreased [None]
  - Hallucination [None]
  - Agitation [None]
  - Anhidrosis [None]
  - Adrenergic syndrome [None]
  - Flushing [None]
  - Mucous membrane disorder [None]
  - Electrocardiogram QT prolonged [None]
  - Rhabdomyolysis [None]
  - Pyrexia [None]
  - Blood calcium increased [None]
  - Muscle rigidity [None]
  - Clonus [None]
  - Sinus tachycardia [None]
  - Blood creatine phosphokinase increased [None]
  - Anticholinergic syndrome [None]
  - Urinary retention [None]
  - Tremor [None]
  - Tachypnoea [None]
  - Dermatillomania [None]
  - Serotonin syndrome [None]
  - Hyperthermia [None]
  - Mydriasis [None]
  - Hypertension [None]
  - Analgesic drug level increased [None]
  - Mucosal dryness [None]
